FAERS Safety Report 11785394 (Version 1)
Quarter: 2015Q4

REPORT INFORMATION
  Report Type: Spontaneous
  Country: US (occurrence: US)
  Receive Date: 20151130
  Receipt Date: 20151130
  Transmission Date: 20160305
  Serious: No
  Sender: FDA-Public Use
  Company Number: US-JNJFOC-20151019500

PATIENT
  Age: 83 Year
  Sex: Male
  Weight: 55.34 kg

DRUGS (1)
  1. TYLENOL EXTRA STRENGTH [Suspect]
     Active Substance: ACETAMINOPHEN
     Indication: PROCEDURAL PAIN
     Dosage: 3/4 CAPLET
     Route: 048
     Dates: start: 20151023

REACTIONS (2)
  - Product use issue [Unknown]
  - Wrong technique in product usage process [Unknown]
